FAERS Safety Report 7784820-1 (Version None)
Quarter: 2011Q3

REPORT INFORMATION
  Report Type: 
  Country: None (occurrence: None)
  Receive Date: 20110928
  Receipt Date: 20110906
  Transmission Date: 20111222
  Serious: Yes (Life-Threatening, Hospitalization)
  Sender: FDA-Public Use
  Company Number: US-MPIJNJ-2011-03560

PATIENT
  Sex: Male
  Weight: 92.517 kg

DRUGS (7)
  1. PAMIDRONATE DISODIUM [Concomitant]
     Indication: METASTASIS
     Dosage: 90 MG, CYCLIC
     Route: 042
     Dates: start: 20110307, end: 20110425
  2. PROMETHAZINE [Concomitant]
     Indication: NAUSEA
     Dosage: 12.5 MG, CYCLIC
     Dates: start: 20110307, end: 20110425
  3. ADRIAMYCIN PFS [Suspect]
     Dosage: 20 MG, CYCLIC
     Route: 042
     Dates: start: 20110307, end: 20110425
  4. KYTRIL [Concomitant]
     Indication: NAUSEA
     Dosage: 1 MG, CYCLIC
     Dates: start: 20110307, end: 20110425
  5. VELCADE [Suspect]
     Indication: MULTIPLE MYELOMA
     Dosage: 1.3 MG/M2, CYCLIC
     Route: 042
     Dates: start: 20110307, end: 20110425
  6. ALOXI [Concomitant]
     Indication: NAUSEA
     Dosage: 0.25 MG, CYCLIC
     Dates: start: 20110307, end: 20110425
  7. DECADRON [Concomitant]
     Indication: NAUSEA
     Dosage: 40 MG, CYCLIC
     Dates: start: 20110307, end: 20110425

REACTIONS (3)
  - DEEP VEIN THROMBOSIS [None]
  - RENAL FAILURE ACUTE [None]
  - DIABETES MELLITUS [None]
